FAERS Safety Report 25665128 (Version 1)
Quarter: 2025Q3

REPORT INFORMATION
  Report Type: Spontaneous
  Country: US (occurrence: US)
  Receive Date: 20250811
  Receipt Date: 20250811
  Transmission Date: 20251021
  Serious: Yes (Disabling, Other)
  Sender: PFIZER
  Company Number: US-PFIZER INC-PV202500094819

PATIENT
  Sex: Male

DRUGS (3)
  1. DEPO-MEDROL [Suspect]
     Active Substance: METHYLPREDNISOLONE ACETATE
     Indication: Osteoarthritis
     Dates: start: 20230829
  2. MARCAINE [Suspect]
     Active Substance: BUPIVACAINE HYDROCHLORIDE
     Indication: Osteoarthritis
     Dates: start: 20230829
  3. LIDOCAINE HYDROCHLORIDE [Suspect]
     Active Substance: LIDOCAINE HYDROCHLORIDE
     Indication: Osteoarthritis
     Dates: start: 20230829

REACTIONS (5)
  - Poor quality product administered [Unknown]
  - Suspected product contamination [Unknown]
  - Suspected transmission of an infectious agent via product [Unknown]
  - Staphylococcal infection [Unknown]
  - Arthritis bacterial [Unknown]

NARRATIVE: CASE EVENT DATE: 20230101
